FAERS Safety Report 20524018 (Version 1)
Quarter: 2022Q1

REPORT INFORMATION
  Report Type: Report from Study
  Country: US (occurrence: None)
  Receive Date: 20220228
  Receipt Date: 20220228
  Transmission Date: 20220423
  Serious: Yes (Other)
  Sender: FDA-Public Use
  Company Number: US-Merck Healthcare KGaA-9159007

PATIENT
  Age: 51 Year
  Sex: Female

DRUGS (3)
  1. REBIF [Suspect]
     Active Substance: INTERFERON BETA-1A
     Indication: Multiple sclerosis
     Dosage: REBIF PREFILLED SYRINGE
     Route: 058
     Dates: start: 20190612, end: 20200815
  2. REBIF [Suspect]
     Active Substance: INTERFERON BETA-1A
     Dosage: REBIF PREFILLED SYRINGE
     Route: 058
     Dates: start: 20200916, end: 20211010
  3. REBIF [Suspect]
     Active Substance: INTERFERON BETA-1A
     Route: 058
     Dates: start: 20211112

REACTIONS (16)
  - Cardiac flutter [Recovered/Resolved]
  - Chest pain [Unknown]
  - Abnormal loss of weight [Unknown]
  - Eating disorder [Unknown]
  - Abdominal pain [Unknown]
  - Nausea [Unknown]
  - Ageusia [Unknown]
  - Fatigue [Unknown]
  - Back pain [Unknown]
  - Frustration tolerance decreased [Not Recovered/Not Resolved]
  - Multiple sclerosis relapse [Not Recovered/Not Resolved]
  - Vision blurred [Unknown]
  - Fall [Unknown]
  - Gait disturbance [Unknown]
  - Visual impairment [Unknown]
  - Inappropriate schedule of product administration [Unknown]

NARRATIVE: CASE EVENT DATE: 20200301
